FAERS Safety Report 14273687 (Version 1)
Quarter: 2017Q4

REPORT INFORMATION
  Report Type: Spontaneous
  Country: ID (occurrence: ID)
  Receive Date: 20171211
  Receipt Date: 20171211
  Transmission Date: 20180321
  Serious: Yes (Death, Life-Threatening, Other)
  Sender: FDA-Public Use
  Company Number: ID-OTSUKA-2017_018859

PATIENT
  Age: 68 Year
  Sex: Male

DRUGS (4)
  1. SERTRALINE [Suspect]
     Active Substance: SERTRALINE HYDROCHLORIDE
     Indication: DEPRESSION
     Dosage: 50 MG, QD
     Route: 048
     Dates: start: 20170825, end: 20170825
  2. SERLOF [Suspect]
     Active Substance: SERTRALINE HYDROCHLORIDE
     Indication: DEPRESSION
     Dosage: 50 MG, QD
     Route: 048
     Dates: start: 20170825, end: 20170825
  3. CEFOTAXIME [Suspect]
     Active Substance: CEFOTAXIME SODIUM
     Indication: PYREXIA
     Dosage: UNK, SINGLE
     Route: 042
     Dates: start: 20170825, end: 20170825
  4. ABILIFY [Suspect]
     Active Substance: ARIPIPRAZOLE
     Indication: DEPRESSION
     Dosage: 2.5 MG, QD
     Route: 048
     Dates: start: 20170825, end: 20170825

REACTIONS (1)
  - Anaphylactic shock [Fatal]
